FAERS Safety Report 24214209 (Version 2)
Quarter: 2024Q3

REPORT INFORMATION
  Report Type: Report from Study
  Country: FR (occurrence: FR)
  Receive Date: 20240815
  Receipt Date: 20240905
  Transmission Date: 20241016
  Serious: Yes (Other)
  Sender: AMGEN
  Company Number: FR-AMGEN-FRANI2024150592

PATIENT
  Age: 45 Year
  Sex: Female
  Weight: 85 kg

DRUGS (5)
  1. TRASTUZUMAB [Suspect]
     Active Substance: TRASTUZUMAB
     Indication: HER2 positive breast cancer
     Dosage: 600 MILLIGRAM, Q3WK
     Route: 058
  2. CAPECITABINE [Suspect]
     Active Substance: CAPECITABINE
     Indication: HER2 positive breast cancer
     Dosage: 1000 MG/M2, BID (DAYS 1 TO 14 OF A 21-DAY CYCLE) (2000 MG/M2, QD)
     Route: 048
  3. CAPECITABINE [Suspect]
     Active Substance: CAPECITABINE
     Indication: HER2 positive breast cancer
  4. TUCATINIB [Suspect]
     Active Substance: TUCATINIB
     Indication: HER2 positive breast cancer
     Dosage: 300 MG, BID WITH A 21-DAY TREATMENT CYCLE/ 600 MG, QD (300 MG, BID)
     Route: 048
     Dates: start: 20210107, end: 20210221
  5. TUCATINIB [Suspect]
     Active Substance: TUCATINIB
     Indication: HER2 positive breast cancer

REACTIONS (1)
  - Hepatic cytolysis [Recovering/Resolving]

NARRATIVE: CASE EVENT DATE: 20210222
